FAERS Safety Report 24172989 (Version 1)
Quarter: 2024Q3

REPORT INFORMATION
  Report Type: Report from Study
  Country: US (occurrence: US)
  Receive Date: 20240805
  Receipt Date: 20240805
  Transmission Date: 20241016
  Serious: Yes (Other)
  Sender: ROCHE
  Company Number: US-ROCHE-10000038754

PATIENT
  Age: 77 Year
  Sex: Female

DRUGS (1)
  1. ALECENSA [Suspect]
     Active Substance: ALECTINIB HYDROCHLORIDE
     Indication: Neoplasm malignant
     Dosage: TAKE 4 CAPSULES (600 MG TOTAL) BY MOUTH 2 TIMES A DAY . ADMINISTER WITH FOOD. SWALLOW CAPSULE WHOLE.
     Route: 048

REACTIONS (1)
  - Fall [Unknown]
